FAERS Safety Report 4328010-3 (Version None)
Quarter: 2004Q1

REPORT INFORMATION
  Report Type: 
  Country: None (occurrence: None)
  Receive Date: 20040325
  Receipt Date: 20030717
  Transmission Date: 20041129
  Serious: Yes (Hospitalization)
  Sender: FDA-Public Use
  Company Number: US-GD-0310533

PATIENT
  Age: 53 Year
  Sex: Female

DRUGS (6)
  1. METROCREAM [Suspect]
     Indication: ROSACEA
     Dosage: 1 APP QD TP
     Route: 064
     Dates: start: 19990101, end: 20030101
  2. METROGEL [Suspect]
     Indication: ROSACEA
     Dosage: 1 APP QD TP
     Route: 064
     Dates: start: 19930101, end: 19990101
  3. SYNTHROID [Concomitant]
  4. LABETALOL HCL [Concomitant]
  5. NEXIUM [Concomitant]
  6. CETAPHIL [Concomitant]

REACTIONS (2)
  - ANXIETY [None]
  - PERIPHERAL SENSORY NEUROPATHY [None]
